FAERS Safety Report 9878084 (Version 2)
Quarter: 2014Q1

REPORT INFORMATION
  Report Type: Spontaneous
  Country: US (occurrence: US)
  Receive Date: 20140206
  Receipt Date: 20140206
  Transmission Date: 20141002
  Serious: Yes (Hospitalization, Other)
  Sender: FDA-Public Use
  Company Number: US-UCBSA-106416

PATIENT
  Age: 50 Year
  Sex: Male
  Weight: 79.3 kg

DRUGS (11)
  1. VIMPAT [Suspect]
     Indication: CONVULSION
     Dosage: STRENTGH-100 MG
     Dates: start: 201303, end: 2013
  2. VIMPAT [Suspect]
     Indication: CONVULSION
     Dosage: DOSE WAS UP TITRATED
     Dates: start: 201304, end: 2013
  3. VIMPAT [Suspect]
     Indication: CONVULSION
     Dosage: DOSE: 200 MG Q AM AND 100 MG Q OM
     Dates: start: 201306, end: 20131207
  4. VIMPAT [Suspect]
     Indication: CONVULSION
     Dosage: 200MG Q AM AND 100MG Q PM
     Dates: start: 20131215
  5. TOPAMAX [Concomitant]
     Dosage: FOR 5 YEARS
     Dates: end: 2013
  6. LAMICTAL [Concomitant]
     Indication: CONVULSION
     Dosage: 300MG QAM AND 100MG QPM STARTED 8 YEARS AGO
  7. LIPITOR [Concomitant]
     Indication: ATRIOVENTRICULAR BLOCK
     Dates: start: 201306
  8. ASA [Concomitant]
     Dosage: DAILY DOSE: 81 MD
     Dates: start: 201306
  9. PAXIL [Concomitant]
     Indication: DEPRESSION
  10. IMITREX [Concomitant]
     Indication: MIGRAINE
     Dates: start: 2013
  11. NUVIGIL [Concomitant]
     Indication: SOMNOLENCE
     Dosage: STARTED MANY YEARS AGO

REACTIONS (8)
  - Complex partial seizures [Not Recovered/Not Resolved]
  - Chest pain [Recovered/Resolved]
  - Convulsion [Unknown]
  - Atrioventricular block [Not Recovered/Not Resolved]
  - Loss of consciousness [Recovered/Resolved]
  - Fall [Recovered/Resolved]
  - Simple partial seizures [Not Recovered/Not Resolved]
  - Migraine [Not Recovered/Not Resolved]
